FAERS Safety Report 12619644 (Version 1)
Quarter: 2016Q3

REPORT INFORMATION
  Report Type: Report from Study
  Country: US (occurrence: US)
  Receive Date: 20160803
  Receipt Date: 20160803
  Transmission Date: 20161109
  Serious: Yes (Other)
  Sender: FDA-Public Use
  Company Number: US-009507513-1608USA001625

PATIENT
  Age: 57 Year
  Sex: Female

DRUGS (3)
  1. HUMIRA [Suspect]
     Active Substance: ADALIMUMAB
     Dosage: 40MG/0.8ML (40 MILIGRAM SOLUTION FOR INJECTION IN PRE-FILLED PEN), UNKNOWN
     Route: 058
     Dates: start: 201604, end: 201607
  2. HUMIRA [Suspect]
     Active Substance: ADALIMUMAB
     Indication: ANKYLOSING SPONDYLITIS
     Dosage: 40MG/0.8ML (40 MILIGRAM SOLUTION FOR INJECTION IN PRE-FILLED PEN), UNKNOWN
     Route: 058
     Dates: start: 201303, end: 201603
  3. FOSAMAX [Suspect]
     Active Substance: ALENDRONATE SODIUM
     Indication: PRODUCT USED FOR UNKNOWN INDICATION
     Dosage: UNKNOWN

REACTIONS (2)
  - Upper limb fracture [Recovered/Resolved]
  - Palatal disorder [Unknown]

NARRATIVE: CASE EVENT DATE: 201603
